FAERS Safety Report 4466311-9 (Version None)
Quarter: 2004Q4

REPORT INFORMATION
  Report Type: 
  Country: None (occurrence: None)
  Receive Date: 20041005
  Receipt Date: 20040524
  Transmission Date: 20050328
  Serious: Yes (Life-Threatening, Hospitalization, Disabling, Other)
  Sender: FDA-Public Use
  Company Number: US-GLAXOSMITHKLINE-A0520112A

PATIENT
  Age: 40 Year
  Sex: Female
  Weight: 90.9 kg

DRUGS (17)
  1. WELLBUTRIN [Suspect]
     Indication: DEPRESSION
     Route: 048
     Dates: start: 20030501, end: 20040428
  2. PREDNISONE [Concomitant]
     Route: 048
     Dates: start: 19860101
  3. NEXIUM [Concomitant]
     Route: 048
     Dates: start: 20000101
  4. REMICADE [Concomitant]
     Route: 042
     Dates: start: 20020301
  5. KLONOPIN [Concomitant]
     Route: 048
     Dates: start: 20020301
  6. ADVAIR DISKUS 100/50 [Concomitant]
     Route: 055
     Dates: start: 20000101
  7. METHOTREXATE [Concomitant]
     Dosage: 15MG WEEKLY
     Route: 048
     Dates: start: 20000301
  8. LOVENOX [Concomitant]
     Dosage: 80MG TWICE PER DAY
     Route: 058
     Dates: start: 20040401, end: 20040428
  9. MULTI-VITAMIN [Concomitant]
  10. SYNVISC [Concomitant]
     Route: 042
     Dates: start: 20031001
  11. SYNVISC [Concomitant]
     Route: 042
     Dates: start: 20040201
  12. IRON [Concomitant]
     Route: 042
     Dates: start: 20031031
  13. FLU VACCINE [Concomitant]
     Dates: start: 20031001
  14. LOVENOX [Concomitant]
     Dates: start: 20031001
  15. COUMADIN [Concomitant]
     Dates: start: 20031001
  16. FRAGMIN [Concomitant]
     Dates: start: 20031119, end: 20031130
  17. BIPAP [Concomitant]
     Dates: end: 20031001

REACTIONS (13)
  - AMNESIA [None]
  - ARTHRALGIA [None]
  - ARTHROPATHY [None]
  - AURA [None]
  - BRACHIAL PLEXUS INJURY [None]
  - ELECTROENCEPHALOGRAM ABNORMAL [None]
  - GRAND MAL CONVULSION [None]
  - JOINT DISLOCATION [None]
  - NECK PAIN [None]
  - NUCLEAR MAGNETIC RESONANCE IMAGING BRAIN ABNORMAL [None]
  - OVARIAN CYST [None]
  - PARAESTHESIA [None]
  - RETINOPATHY [None]
